FAERS Safety Report 8048460-1 (Version None)
Quarter: 2012Q1

REPORT INFORMATION
  Report Type: 
  Country: None (occurrence: None)
  Receive Date: 20120117
  Receipt Date: 20120110
  Transmission Date: 20120608
  Serious: No
  Sender: FDA-Public Use
  Company Number: US-PFIZER INC-2012008233

PATIENT

DRUGS (1)
  1. PREMARIN [Suspect]
     Dosage: 0.3

REACTIONS (3)
  - NERVOUSNESS [None]
  - MALAISE [None]
  - DEPRESSED MOOD [None]
